FAERS Safety Report 7942170-4 (Version None)
Quarter: 2011Q4

REPORT INFORMATION
  Report Type: 
  Country: None (occurrence: None)
  Receive Date: 20111123
  Receipt Date: 20111123
  Transmission Date: 20120403
  Serious: No
  Sender: FDA-Public Use
  Company Number: None

PATIENT
  Age: 60 Year
  Sex: Female

DRUGS (1)
  1. THYMOGLOBULIN [Suspect]
     Indication: RENAL FAILURE CHRONIC
     Dosage: 125MG X 2 DOSES IVPB
     Route: 040
     Dates: start: 20111031, end: 20111101

REACTIONS (2)
  - TACHYCARDIA [None]
  - STRIDOR [None]
